FAERS Safety Report 24211692 (Version 1)
Quarter: 2024Q3

REPORT INFORMATION
  Report Type: Spontaneous
  Country: US (occurrence: US)
  Receive Date: 20240814
  Receipt Date: 20240814
  Transmission Date: 20241017
  Serious: No
  Sender: BRISTOL MYERS SQUIBB
  Company Number: US-BRISTOL-MYERS SQUIBB COMPANY-2024-128652

PATIENT
  Age: 56 Year
  Sex: Female

DRUGS (2)
  1. ORENCIA [Suspect]
     Active Substance: ABATACEPT
     Indication: Spinal osteoarthritis
     Route: 058
     Dates: start: 20231101
  2. ORENCIA [Suspect]
     Active Substance: ABATACEPT
     Indication: Radiculopathy

REACTIONS (2)
  - Nasopharyngitis [Unknown]
  - Off label use [Unknown]
